FAERS Safety Report 6153282-2 (Version None)
Quarter: 2009Q2

REPORT INFORMATION
  Report Type: 
  Country: None (occurrence: None)
  Receive Date: 20090409
  Receipt Date: 20090327
  Transmission Date: 20091009
  Serious: Yes (Death, Hospitalization)
  Sender: FDA-Public Use
  Company Number: 2009000928

PATIENT
  Age: 81 Year
  Sex: Male
  Weight: 49.4 kg

DRUGS (9)
  1. ERLOTINIB(ERLOTINIB HC1) (TABLET) (ERLOTINIB HC1) [Suspect]
     Indication: NON-SMALL CELL LUNG CANCER
     Dosage: 150 MG (150 MG,QD),ORAL ; (100 MG,QD),ORAL ; (75 MG,QD),ORAL
     Route: 048
     Dates: start: 20081209, end: 20081216
  2. ERLOTINIB(ERLOTINIB HC1) (TABLET) (ERLOTINIB HC1) [Suspect]
     Indication: NON-SMALL CELL LUNG CANCER
     Dosage: 150 MG (150 MG,QD),ORAL ; (100 MG,QD),ORAL ; (75 MG,QD),ORAL
     Route: 048
     Dates: start: 20081128, end: 20081225
  3. ERLOTINIB(ERLOTINIB HC1) (TABLET) (ERLOTINIB HC1) [Suspect]
     Indication: NON-SMALL CELL LUNG CANCER
     Dosage: 150 MG (150 MG,QD),ORAL ; (100 MG,QD),ORAL ; (75 MG,QD),ORAL
     Route: 048
     Dates: start: 20081216, end: 20081225
  4. PREDNISOLONE [Suspect]
  5. SELBEX (TEPRENONE) [Concomitant]
  6. ZANTAC 150 [Concomitant]
  7. LASIX [Concomitant]
  8. SLOW-K [Concomitant]
  9. MAGNESIUM OXIDE (MAGNESIUM OXIDE) [Concomitant]

REACTIONS (5)
  - ACUTE RESPIRATORY DISTRESS SYNDROME [None]
  - GANGRENE [None]
  - HERPES ZOSTER [None]
  - INTERSTITIAL LUNG DISEASE [None]
  - PRURITUS [None]
